FAERS Safety Report 10053053 (Version 3)
Quarter: 2014Q2

REPORT INFORMATION
  Report Type: Spontaneous
  Country: US (occurrence: US)
  Receive Date: 20140402
  Receipt Date: 20140501
  Transmission Date: 20141212
  Serious: Yes (Death)
  Sender: FDA-Public Use
  Company Number: CHPA2014US004619

PATIENT
  Age: 71 Year
  Sex: Male

DRUGS (2)
  1. TRIAMINIC DAY TIME COLD + COUGH [Suspect]
     Indication: COUGH
     Route: 048
  2. TRIAMINIC NIGHT TIME COLD + COUGH [Suspect]
     Indication: COUGH
     Route: 048

REACTIONS (2)
  - Lung cancer metastatic [Fatal]
  - Drug administered to patient of inappropriate age [Unknown]
